FAERS Safety Report 7402298-4 (Version None)
Quarter: 2011Q2

REPORT INFORMATION
  Report Type: 
  Country: None (occurrence: None)
  Receive Date: 20110408
  Receipt Date: 20110405
  Transmission Date: 20111010
  Serious: No
  Sender: FDA-Public Use
  Company Number: US-PFIZER INC-2011075590

PATIENT
  Sex: Female
  Weight: 61.224 kg

DRUGS (1)
  1. DIFLUCAN [Suspect]
     Indication: FUNGAL INFECTION
     Dosage: 150 MG, 1X/DAY
     Route: 048
     Dates: start: 20110111, end: 20110112

REACTIONS (3)
  - CHEILITIS [None]
  - LIP SWELLING [None]
  - LIP PAIN [None]
